FAERS Safety Report 8936337 (Version 1)
Quarter: 2012Q4

REPORT INFORMATION
  Report Type: Report from Study
  Country: GB (occurrence: MY)
  Receive Date: 20121130
  Receipt Date: 20121130
  Transmission Date: 20130627
  Serious: Yes (Death, Hospitalization)
  Sender: FDA-Public Use
  Company Number: MY-ELI_LILLY_AND_COMPANY-MY201211007393

PATIENT
  Age: 65 None
  Sex: Female

DRUGS (2)
  1. GEMCITABINE HYDROCHLORIDE [Suspect]
     Indication: BREAST CANCER
     Dosage: UNK
     Dates: start: 20080312, end: 20090623
  2. BEVACIZUMAB [Suspect]
     Indication: BREAST CANCER
     Dosage: 945 mg, every 3 weeks
     Dates: start: 20080312, end: 20090721

REACTIONS (3)
  - Lobar pneumonia [Fatal]
  - Cardiac failure congestive [Fatal]
  - Anaemia [Unknown]
